FAERS Safety Report 17487153 (Version 1)
Quarter: 2020Q1

REPORT INFORMATION
  Report Type: Spontaneous
  Country: US (occurrence: US)
  Receive Date: 20200303
  Receipt Date: 20200303
  Transmission Date: 20200409
  Serious: Yes (Other)
  Sender: FDA-Public Use
  Company Number: NVSC2020US055284

PATIENT
  Age: 91 Year
  Sex: Female

DRUGS (1)
  1. BEOVU [Suspect]
     Active Substance: BROLUCIZUMAB-DBLL
     Indication: NEOVASCULAR AGE-RELATED MACULAR DEGENERATION
     Dosage: 6 MG/KG, QMO
     Route: 047
     Dates: start: 20200219, end: 20200224

REACTIONS (5)
  - Vitritis [Unknown]
  - Anterior chamber cell [Unknown]
  - Anterior chamber flare [Unknown]
  - Vision blurred [Unknown]
  - Chorioretinitis [Unknown]

NARRATIVE: CASE EVENT DATE: 20200219
